FAERS Safety Report 11459345 (Version 1)
Quarter: 2015Q3

REPORT INFORMATION
  Report Type: Spontaneous
  Country: US (occurrence: US)
  Receive Date: 20150904
  Receipt Date: 20150904
  Transmission Date: 20151125
  Serious: No
  Sender: FDA-Public Use
  Company Number: US-JNJFOC-20150823949

PATIENT
  Age: 43 Year
  Sex: Female
  Weight: 91.17 kg

DRUGS (11)
  1. TOPAMAX [Concomitant]
     Active Substance: TOPIRAMATE
     Indication: NERVOUS SYSTEM DISORDER
     Route: 048
     Dates: start: 2004
  2. LANTUS [Concomitant]
     Active Substance: INSULIN GLARGINE
     Indication: DIABETES MELLITUS
     Dosage: 45 UNITS DAILY IN THE MORNING.
     Route: 058
     Dates: start: 1999
  3. TOPAMAX [Concomitant]
     Active Substance: TOPIRAMATE
     Indication: NERVOUS SYSTEM DISORDER
     Dosage: DAILY IN THE MORNING.
     Route: 048
     Dates: start: 2004
  4. HUMALOG [Concomitant]
     Active Substance: INSULIN LISPRO
     Indication: DIABETES MELLITUS
     Dosage: SLIDING SCALE.??AS NEEDED WHEN ABOVE 200.
     Route: 058
     Dates: start: 2003
  5. METFORMIN [Concomitant]
     Active Substance: METFORMIN HYDROCHLORIDE
     Indication: DIABETES MELLITUS
     Route: 048
     Dates: start: 1999
  6. GLYBURIDE. [Concomitant]
     Active Substance: GLYBURIDE
     Indication: DIABETES MELLITUS
     Route: 048
     Dates: start: 2014
  7. TRAMADOL. [Concomitant]
     Active Substance: TRAMADOL
     Indication: PAIN
     Dosage: TWICE DAILY AS NEEDED.
     Route: 048
     Dates: start: 2004
  8. LANTUS [Concomitant]
     Active Substance: INSULIN GLARGINE
     Indication: DIABETES MELLITUS
     Dosage: 45 UNITS OR 51 UNITS DAILY AT NIGHT.
     Route: 058
     Dates: start: 1999
  9. INVOKANA [Suspect]
     Active Substance: CANAGLIFLOZIN
     Indication: DIABETES MELLITUS
     Route: 048
     Dates: start: 20150724
  10. LISINOPRIL. [Concomitant]
     Active Substance: LISINOPRIL
     Indication: HYPERTENSION
     Route: 048
     Dates: start: 2002
  11. BACLOFEN. [Concomitant]
     Active Substance: BACLOFEN
     Indication: MUSCULOSKELETAL PAIN
     Dosage: AS NEEDED
     Route: 048
     Dates: start: 2014

REACTIONS (2)
  - Drug dose omission [Unknown]
  - Weight decreased [Not Recovered/Not Resolved]

NARRATIVE: CASE EVENT DATE: 201508
